FAERS Safety Report 19392146 (Version 5)
Quarter: 2021Q4

REPORT INFORMATION
  Report Type: Report from Study
  Country: CA (occurrence: CA)
  Receive Date: 20210609
  Receipt Date: 20211220
  Transmission Date: 20220303
  Serious: Yes (Other)
  Sender: FDA-Public Use
  Company Number: CA-JNJFOC-20210607870

PATIENT
  Age: 81 Year
  Sex: Male
  Weight: 86.4 kg

DRUGS (1)
  1. REMICADE [Suspect]
     Active Substance: INFLIXIMAB
     Indication: Colitis ulcerative
     Dosage: ADDITIONAL START DATE 31-AUG-2016
     Route: 042
     Dates: start: 20160816

REACTIONS (1)
  - Skin cancer [Recovering/Resolving]

NARRATIVE: CASE EVENT DATE: 20210518
